FAERS Safety Report 9371155 (Version 1)
Quarter: 2013Q2

REPORT INFORMATION
  Report Type: Spontaneous
  Country: US (occurrence: None)
  Receive Date: 20130626
  Receipt Date: 20130626
  Transmission Date: 20140414
  Serious: Yes (Hospitalization)
  Sender: FDA-Public Use
  Company Number: None

PATIENT
  Age: 73 Year
  Sex: Female
  Weight: 66.23 kg

DRUGS (1)
  1. METHOTREXATE [Suspect]
     Indication: SJOGREN^S SYNDROME
     Dates: start: 20120411

REACTIONS (6)
  - Cough [None]
  - Fatigue [None]
  - Decreased appetite [None]
  - Pneumonia [None]
  - Pneumonia fungal [None]
  - Apparent death [None]
